FAERS Safety Report 12812829 (Version 1)
Quarter: 2016Q4

REPORT INFORMATION
  Report Type: Spontaneous
  Country: US (occurrence: US)
  Receive Date: 20161005
  Receipt Date: 20161005
  Transmission Date: 20170207
  Serious: Yes (Other)
  Sender: FDA-Public Use
  Company Number: US-APOTEX-2016AP011581

PATIENT
  Age: 34 Week
  Sex: Female
  Weight: 1.7 kg

DRUGS (1)
  1. TIMOLOL MALEATE OPHTHALMIC SOLUTION USP [Suspect]
     Active Substance: TIMOLOL MALEATE
     Indication: INFANTILE HAEMANGIOMA
     Dosage: 0.29 MG/KG/DAY SOLUTION (2 DROPS DAILY)
     Route: 061

REACTIONS (2)
  - Off label use [Unknown]
  - Bradycardia [Unknown]
